FAERS Safety Report 7532377-2 (Version None)
Quarter: 2011Q2

REPORT INFORMATION
  Report Type: 
  Country: None (occurrence: None)
  Receive Date: 20110608
  Receipt Date: 20110601
  Transmission Date: 20111010
  Serious: Yes (Other)
  Sender: FDA-Public Use
  Company Number: FR-PFIZER INC-2011118193

PATIENT
  Age: 65 Year
  Sex: Female

DRUGS (17)
  1. LEXOMIL [Suspect]
     Indication: ANXIETY
     Dosage: 0.5 DF, 1X/DAY
     Route: 048
     Dates: start: 20110502, end: 20110509
  2. LYRICA [Suspect]
     Indication: PAIN
     Dosage: 50 MG, 2X/DAY
     Route: 048
     Dates: start: 20110505, end: 20110513
  3. ATORVASTATIN [Concomitant]
     Dosage: 20 MG, 1X/DAY
     Route: 048
     Dates: end: 20110508
  4. OXYCONTIN [Suspect]
     Indication: PAIN
     Dosage: 10 MG, 2X/DAY
     Route: 048
     Dates: start: 20110505, end: 20110509
  5. HALDOL [Suspect]
     Indication: NAUSEA
  6. PREDNISOLONE [Concomitant]
     Dosage: 1 DF, 1X/DAY
     Route: 048
     Dates: start: 20110407
  7. ACETAMINOPHEN [Concomitant]
     Dosage: 2 DF, 3X/DAY
     Route: 048
     Dates: start: 20110502
  8. FORLAX [Concomitant]
     Dosage: 10 G, 1X/DAY
     Route: 048
     Dates: start: 20110502, end: 20110510
  9. PANTOPRAZOLE [Concomitant]
     Dosage: 1 DF, 1X/DAY
     Dates: start: 20110429
  10. ATARAX [Suspect]
     Dosage: 25 MG, 1X/DAY
     Route: 048
     Dates: start: 20110502, end: 20110511
  11. HALDOL [Suspect]
     Indication: ANXIETY
     Dosage: UNK
     Route: 048
     Dates: start: 20110505
  12. HALDOL [Suspect]
     Indication: VOMITING
  13. OXYCODONE HCL [Suspect]
     Indication: PAIN
     Dosage: UNK
     Route: 048
     Dates: start: 20110502
  14. LEVEMIR [Concomitant]
     Indication: TYPE 2 DIABETES MELLITUS
     Dosage: 22 IU IN AM, 12 IU IN EVENING
     Route: 058
     Dates: start: 20110505, end: 20110508
  15. REPAGLINIDE [Concomitant]
     Indication: TYPE 2 DIABETES MELLITUS
     Dosage: 4 DF, 3X/DAY
     Route: 048
     Dates: end: 20110508
  16. DULCOLAX [Concomitant]
     Dosage: 1 DF, 1X/DAY
     Route: 048
     Dates: start: 20110501, end: 20110509
  17. ALLOPURINOL [Concomitant]
     Dosage: 1 DF, 1X/DAY
     Route: 048
     Dates: start: 20110502, end: 20110508

REACTIONS (5)
  - ANTEROGRADE AMNESIA [None]
  - CONFUSIONAL STATE [None]
  - DISORIENTATION [None]
  - SLUGGISHNESS [None]
  - COGNITIVE DISORDER [None]
